FAERS Safety Report 18732503 (Version 1)
Quarter: 2021Q1

REPORT INFORMATION
  Report Type: Spontaneous
  Country: US (occurrence: US)
  Receive Date: 20210112
  Receipt Date: 20210112
  Transmission Date: 20210419
  Serious: Yes (Other)
  Sender: FDA-Public Use
  Company Number: US-FRESENIUS KABI-FK202100447

PATIENT
  Age: 17 Year
  Sex: Male
  Weight: 84 kg

DRUGS (1)
  1. MORPHINE SULFATE INJECTION (MANUFACTURER UNKNOWN) [Suspect]
     Active Substance: MORPHINE SULFATE
     Indication: PRODUCT USED FOR UNKNOWN INDICATION
     Dosage: UNKNOWN
     Route: 065

REACTIONS (3)
  - Overdose [Recovered/Resolved]
  - Myocardial depression [Recovered/Resolved]
  - Cardiogenic shock [Recovered/Resolved]
